FAERS Safety Report 24947018 (Version 1)
Quarter: 2025Q1

REPORT INFORMATION
  Report Type: Spontaneous
  Country: CN (occurrence: CN)
  Receive Date: 20250210
  Receipt Date: 20250210
  Transmission Date: 20250408
  Serious: Yes (Other)
  Sender: BAXTER
  Company Number: CN-MLMSERVICE-20250124-PI374549-00266-1

PATIENT
  Age: 8 Decade
  Sex: Female

DRUGS (1)
  1. POTASSIUM CHLORIDE\SODIUM CHLORIDE [Suspect]
     Active Substance: POTASSIUM CHLORIDE\SODIUM CHLORIDE
     Indication: Hypokalaemia
     Route: 042
     Dates: start: 202302

REACTIONS (8)
  - Skin necrosis [Unknown]
  - Skin ulcer [Recovering/Resolving]
  - Purulent discharge [Unknown]
  - Injection site phlebitis [Unknown]
  - Erythema [Recovered/Resolved]
  - Discomfort [Unknown]
  - Pain [Unknown]
  - Injection site extravasation [Unknown]

NARRATIVE: CASE EVENT DATE: 20230101
